FAERS Safety Report 6750959-2 (Version None)
Quarter: 2010Q2

REPORT INFORMATION
  Report Type: 
  Country: None (occurrence: None)
  Receive Date: 20100602
  Receipt Date: 20100518
  Transmission Date: 20101027
  Serious: Yes (Other)
  Sender: FDA-Public Use
  Company Number: PHEH2010US03072

PATIENT
  Sex: Female

DRUGS (2)
  1. DIOVAN [Suspect]
     Dosage: 80 MG, UNK
     Dates: start: 20100303
  2. COUMADIN [Concomitant]

REACTIONS (5)
  - BRONCHITIS [None]
  - COUGH [None]
  - HAEMORRHAGE [None]
  - RESPIRATORY TRACT INFECTION [None]
  - SPINAL DISORDER [None]
